FAERS Safety Report 5382003-6 (Version None)
Quarter: 2007Q3

REPORT INFORMATION
  Report Type: 
  Country: None (occurrence: None)
  Receive Date: 20070709
  Receipt Date: 20070705
  Transmission Date: 20080115
  Serious: Yes (Hospitalization)
  Sender: FDA-Public Use
  Company Number: B0477843A

PATIENT
  Age: 32 Year
  Sex: Female
  Weight: 107 kg

DRUGS (1)
  1. LAMICTAL [Suspect]
     Indication: EPILEPSY
     Route: 048
     Dates: start: 20061012

REACTIONS (1)
  - INTERVERTEBRAL DISC PROTRUSION [None]
